FAERS Safety Report 6484919-6 (Version None)
Quarter: 2009Q4

REPORT INFORMATION
  Report Type: 
  Country: None (occurrence: None)
  Receive Date: 20091203
  Receipt Date: 20091123
  Transmission Date: 20100525
  Serious: Yes (Death, Hospitalization)
  Sender: FDA-Public Use
  Company Number: 91547

PATIENT
  Age: 67 Year
  Sex: Male

DRUGS (1)
  1. AZATHIOPRINE SODIUM [Suspect]
     Indication: RENAL TRANSPLANT
     Dosage: 50MG/DAY

REACTIONS (12)
  - ACTINIC KERATOSIS [None]
  - BASAL CELL CARCINOMA [None]
  - DYSPNOEA [None]
  - LYMPHOEDEMA [None]
  - METASTASES TO CENTRAL NERVOUS SYSTEM [None]
  - METASTASES TO LIVER [None]
  - METASTASES TO LUNG [None]
  - METASTASES TO SPLEEN [None]
  - METASTATIC MALIGNANT MELANOMA [None]
  - NODULE [None]
  - PLEURAL EFFUSION [None]
  - SQUAMOUS CELL CARCINOMA [None]
